FAERS Safety Report 5805260-8 (Version None)
Quarter: 2008Q3

REPORT INFORMATION
  Report Type: 
  Country: None (occurrence: None)
  Receive Date: 20080707
  Receipt Date: 20080624
  Transmission Date: 20090109
  Serious: Yes (Death)
  Sender: FDA-Public Use
  Company Number: 2008AL007566

PATIENT
  Age: 72 Year
  Sex: Male
  Weight: 58.0604 kg

DRUGS (1)
  1. DIGOXIN [Suspect]
     Indication: CARDIAC DISORDER
     Dosage: PO
     Route: 048
     Dates: start: 20071001, end: 20080201

REACTIONS (5)
  - CHEST PAIN [None]
  - HYPOTENSION [None]
  - INFARCTION [None]
  - LOSS OF CONSCIOUSNESS [None]
  - VOMITING [None]
